FAERS Safety Report 14572272 (Version 2)
Quarter: 2018Q1

REPORT INFORMATION
  Report Type: Spontaneous
  Country: US (occurrence: US)
  Receive Date: 20180226
  Receipt Date: 20180307
  Transmission Date: 20180509
  Serious: Yes (Hospitalization, Other)
  Sender: FDA-Public Use
  Company Number: US-JNJFOC-20180228150

PATIENT
  Sex: Male
  Weight: 84.37 kg

DRUGS (2)
  1. XARELTO [Suspect]
     Active Substance: RIVAROXABAN
     Indication: ATRIAL FIBRILLATION
     Route: 048
  2. XARELTO [Suspect]
     Active Substance: RIVAROXABAN
     Indication: THROMBOSIS PROPHYLAXIS
     Route: 048

REACTIONS (5)
  - Atrial fibrillation [Unknown]
  - Visual impairment [Unknown]
  - Cardiac flutter [Unknown]
  - Tremor [Unknown]
  - Inappropriate schedule of drug administration [Unknown]
